FAERS Safety Report 12465396 (Version 3)
Quarter: 2016Q3

REPORT INFORMATION
  Report Type: Spontaneous
  Country: FR (occurrence: FR)
  Receive Date: 20160614
  Receipt Date: 20160713
  Transmission Date: 20161109
  Serious: Yes (Death)
  Sender: FDA-Public Use
  Company Number: FR-SA-2016SA109967

PATIENT
  Age: 82 Year
  Sex: Female

DRUGS (11)
  1. IKOREL [Concomitant]
     Active Substance: NICORANDIL
     Route: 048
  2. FUMAFER [Concomitant]
     Active Substance: FERROUS FUMARATE
     Indication: CARDIAC FAILURE
     Route: 048
  3. PLAVIX [Suspect]
     Active Substance: CLOPIDOGREL BISULFATE
     Indication: ISCHAEMIC CARDIOMYOPATHY
     Route: 048
  4. DIAMOX SEQUELS [Suspect]
     Active Substance: ACETAZOLAMIDE
     Indication: CARDIAC FAILURE
     Route: 048
     Dates: start: 201506
  5. ZOLPIDEM [Concomitant]
     Active Substance: ZOLPIDEM\ZOLPIDEM TARTRATE
     Indication: MYOCARDIAL ISCHAEMIA
     Dosage: 10 MG
     Route: 048
  6. ZAMUDOL [Concomitant]
     Active Substance: TRAMADOL HYDROCHLORIDE
     Dosage: 50 MG PROLONGED RELEASE CAPSULE
     Route: 048
  7. LOVENOX [Concomitant]
     Active Substance: ENOXAPARIN SODIUM
     Dosage: 4000 ANTI-XA IU / 0.4 ML, SOLUTION FOR INJECTION IN PRE-FILLED SYRINGE
     Route: 058
  8. LASILIX [Concomitant]
     Active Substance: FUROSEMIDE
     Dates: start: 201506
  9. METFORMIN [Suspect]
     Active Substance: METFORMIN HYDROCHLORIDE
     Indication: TYPE 2 DIABETES MELLITUS
     Route: 048
  10. INEXIUM [Interacting]
     Active Substance: ESOMEPRAZOLE
     Route: 048
  11. ALDACTONE [Interacting]
     Active Substance: SPIRONOLACTONE
     Indication: CARDIAC FAILURE
     Route: 048
     Dates: start: 201506

REACTIONS (4)
  - Off label use [Unknown]
  - Drug interaction [Unknown]
  - Metabolic acidosis [Fatal]
  - Renal failure [Fatal]

NARRATIVE: CASE EVENT DATE: 20150625
